FAERS Safety Report 7574625-9 (Version None)
Quarter: 2011Q2

REPORT INFORMATION
  Report Type: 
  Country: None (occurrence: None)
  Receive Date: 20110627
  Receipt Date: 20110617
  Transmission Date: 20111010
  Serious: Yes (Other)
  Sender: FDA-Public Use
  Company Number: BR-ASTRAZENECA-2011SE37188

PATIENT
  Age: 63 Year
  Sex: Male

DRUGS (2)
  1. ZOLADEX [Suspect]
     Indication: PROSTATE CANCER
     Route: 058
     Dates: start: 20080101
  2. CASODEX [Suspect]
     Indication: PROSTATE CANCER
     Dosage: FREQUENCY DAILY
     Route: 048
     Dates: start: 20110407

REACTIONS (3)
  - METASTASES TO BONE [None]
  - PROSTATIC SPECIFIC ANTIGEN INCREASED [None]
  - RADIOTHERAPY TO BONE [None]
